FAERS Safety Report 9759382 (Version 1)
Quarter: 2013Q4

REPORT INFORMATION
  Report Type: Spontaneous
  Country: US (occurrence: None)
  Receive Date: 20131216
  Receipt Date: 20131216
  Transmission Date: 20140711
  Serious: Yes (Hospitalization)
  Sender: FDA-Public Use
  Company Number: 163-21880-12041088 (0)

PATIENT
  Age: 75 Year
  Sex: Male

DRUGS (1)
  1. REVLIMID (LENALIDOMIDE) (25 MILLIGRAM, CAPSULES) [Suspect]
     Indication: PLASMA CELL MYELOMA
     Dosage: 25 MG, QD X 21 DAYS, 7 DAYS OFF, PO ?25 MG, QD X 21 DAYS, 7 DAYS OFF, PO?

REACTIONS (3)
  - Dehydration [None]
  - Anaemia [None]
  - Lobar pneumonia [None]
